FAERS Safety Report 23198553 (Version 2)
Quarter: 2024Q4

REPORT INFORMATION
  Report Type: Spontaneous
  Country: US (occurrence: US)
  Receive Date: 20231117
  Receipt Date: 20241218
  Transmission Date: 20250115
  Serious: Yes (Hospitalization, Other)
  Sender: PFIZER
  Company Number: US-PFIZER INC-PV202300021284

PATIENT
  Age: 67 Year
  Sex: Female
  Weight: 90.72 kg

DRUGS (3)
  1. IBRANCE [Suspect]
     Active Substance: PALBOCICLIB
     Indication: Breast cancer female
     Dosage: ONCE A DAY FOR 3 WEEKS AND THEN 1 WEEK OFF
     Route: 048
     Dates: start: 2021
  2. IBRANCE [Suspect]
     Active Substance: PALBOCICLIB
     Dosage: ONCE A DAY FOR 3 WEEKS AND THEN 1 WEEK OFF/1 TAB PO QD X 21 DAYS FOLLOWED BY 7 DAYS OFF)
     Route: 048
  3. LETROZOLE [Concomitant]
     Active Substance: LETROZOLE
     Indication: HER2 negative breast cancer
     Dosage: 2.5 MG, 1X/DAY
     Dates: start: 2021

REACTIONS (4)
  - Sepsis [Unknown]
  - Loose tooth [Unknown]
  - Tooth loss [Unknown]
  - Product prescribing issue [Unknown]

NARRATIVE: CASE EVENT DATE: 20230101
